FAERS Safety Report 8938399 (Version 1)
Quarter: 2012Q4

REPORT INFORMATION
  Report Type: 
  Country: BR (occurrence: BR)
  Receive Date: 20121203
  Receipt Date: 20121203
  Transmission Date: 20130627
  Serious: Yes (Death, Other)
  Sender: FDA-Public Use
  Company Number: PHHY2012BR109692

PATIENT
  Age: 83 None
  Sex: Female
  Weight: 30 kg

DRUGS (2)
  1. FORASEQ [Suspect]
     Indication: EMPHYSEMA
     Dosage: 2 DF, Daily
     Dates: start: 1996
  2. CENTRUM [Concomitant]
     Indication: VITAMIN SUPPLEMENTATION
     Dosage: 1 DF, UNK
     Route: 048

REACTIONS (13)
  - Respiratory tract infection [Fatal]
  - Respiratory disorder [Unknown]
  - Glucose tolerance impaired [Not Recovered/Not Resolved]
  - Blood glucose fluctuation [Not Recovered/Not Resolved]
  - Blood glucose increased [Not Recovered/Not Resolved]
  - Osteoporosis [Unknown]
  - Candidiasis [Unknown]
  - Lung disorder [Not Recovered/Not Resolved]
  - Aerophagia [Not Recovered/Not Resolved]
  - Gastric ulcer [Unknown]
  - Flatulence [Unknown]
  - Asthenia [Not Recovered/Not Resolved]
  - Dyspnoea [Unknown]
